FAERS Safety Report 23007636 (Version 3)
Quarter: 2023Q4

REPORT INFORMATION
  Report Type: Report from Study
  Country: US (occurrence: US)
  Receive Date: 20230929
  Receipt Date: 20231230
  Transmission Date: 20240110
  Serious: Yes (Life-Threatening)
  Sender: FDA-Public Use
  Company Number: US-002147023-NVSC2023US210160

PATIENT
  Sex: Female

DRUGS (1)
  1. KESIMPTA [Suspect]
     Active Substance: OFATUMUMAB
     Indication: Product used for unknown indication
     Dosage: UNK
     Route: 065
     Dates: start: 202308

REACTIONS (9)
  - Feeling abnormal [Unknown]
  - Condition aggravated [Unknown]
  - Gait disturbance [Unknown]
  - Hypoaesthesia [Unknown]
  - Pain [Unknown]
  - Musculoskeletal discomfort [Unknown]
  - Fatigue [Unknown]
  - Dermatitis allergic [Unknown]
  - Crying [Unknown]
